FAERS Safety Report 23461639 (Version 2)
Quarter: 2024Q1

REPORT INFORMATION
  Report Type: Spontaneous
  Country: US (occurrence: US)
  Receive Date: 20240131
  Receipt Date: 20240301
  Transmission Date: 20240410
  Serious: Yes (Other)
  Sender: FDA-Public Use
  Company Number: ENDB24-00159

PATIENT
  Age: 76 Year
  Sex: Male
  Weight: 79.365 kg

DRUGS (4)
  1. VALSTAR [Suspect]
     Active Substance: VALRUBICIN
     Indication: Bladder cancer
     Dosage: 800 MILLIGRAM, UNKNOWN
     Route: 043
     Dates: start: 20220627, end: 20220809
  2. VALSTAR [Suspect]
     Active Substance: VALRUBICIN
     Indication: Bladder cancer
     Dosage: 800 MILLIGRAM, UNKNOWN
     Route: 043
     Dates: start: 20220627, end: 20220809
  3. VALSTAR [Suspect]
     Active Substance: VALRUBICIN
     Dosage: 800 MILLIGRAM, UNKNOWN
     Route: 043
     Dates: start: 20221205, end: 20230116
  4. VALSTAR [Suspect]
     Active Substance: VALRUBICIN
     Dosage: 800 MILLIGRAM, UNKNOWN
     Route: 043
     Dates: start: 20221205, end: 20230116

REACTIONS (3)
  - Ureteric cancer [Unknown]
  - Ill-defined disorder [Unknown]
  - Therapeutic product effect incomplete [Unknown]

NARRATIVE: CASE EVENT DATE: 20240103
